FAERS Safety Report 19028353 (Version 1)
Quarter: 2021Q1

REPORT INFORMATION
  Report Type: Spontaneous
  Country: CN (occurrence: CN)
  Receive Date: 20210319
  Receipt Date: 20210319
  Transmission Date: 20210420
  Serious: Yes (Hospitalization, Other)
  Sender: FDA-Public Use
  Company Number: CN-B.I. PHARMACEUTICALS,INC./RIDGEFIELD-2021-BI-090141

PATIENT
  Age: 70 Year
  Sex: Male
  Weight: 43 kg

DRUGS (1)
  1. PRADAXA [Suspect]
     Active Substance: DABIGATRAN ETEXILATE MESYLATE
     Indication: ATRIAL FIBRILLATION
     Route: 048
     Dates: start: 20210220, end: 20210310

REACTIONS (5)
  - Coagulation time prolonged [Recovering/Resolving]
  - Gastric haemorrhage [Recovering/Resolving]
  - Coagulopathy [Recovering/Resolving]
  - Occult blood positive [Recovering/Resolving]
  - Anaemia [Recovering/Resolving]

NARRATIVE: CASE EVENT DATE: 20210222
